FAERS Safety Report 24874493 (Version 1)
Quarter: 2025Q1

REPORT INFORMATION
  Report Type: Spontaneous
  Country: PK (occurrence: PK)
  Receive Date: 20250122
  Receipt Date: 20250122
  Transmission Date: 20250408
  Serious: Yes (Other)
  Sender: ELI LILLY AND COMPANY
  Company Number: PK-ELI_LILLY_AND_COMPANY-PK202501007488

PATIENT
  Age: 28 Year
  Sex: Female

DRUGS (3)
  1. INSULIN LISPRO [Suspect]
     Active Substance: INSULIN LISPRO
     Indication: Type 1 diabetes mellitus
     Route: 065
     Dates: start: 2014
  2. INSULIN GLARGINE [Suspect]
     Active Substance: INSULIN GLARGINE
     Indication: Type 1 diabetes mellitus
     Route: 065
     Dates: start: 2014
  3. ATORVASTATIN [Concomitant]
     Active Substance: ATORVASTATIN
     Indication: Cardiovascular disorder
     Dosage: 20 MG, DAILY
     Route: 065

REACTIONS (6)
  - Injury [Unknown]
  - Anxiety [Unknown]
  - Body dysmorphic disorder [Unknown]
  - Localised lipodystrophy [Unknown]
  - Lack of injection site rotation [Unknown]
  - Multiple use of single-use product [Unknown]
